FAERS Safety Report 25974995 (Version 1)
Quarter: 2025Q4

REPORT INFORMATION
  Report Type: Spontaneous
  Country: JP (occurrence: JP)
  Receive Date: 20251029
  Receipt Date: 20251029
  Transmission Date: 20260118
  Serious: Yes (Death, Other)
  Sender: MERCK SHARP & DOHME LLC
  Company Number: JP-009507513-2344043

PATIENT
  Age: 6 Decade
  Sex: Female

DRUGS (1)
  1. PEMBROLIZUMAB [Suspect]
     Active Substance: PEMBROLIZUMAB
     Indication: Uterine cancer

REACTIONS (4)
  - Death [Fatal]
  - Immune-mediated myocarditis [Recovering/Resolving]
  - Right ventricular failure [Recovering/Resolving]
  - Inappropriate schedule of product administration [Unknown]
